FAERS Safety Report 4484127-4 (Version None)
Quarter: 2004Q4

REPORT INFORMATION
  Report Type: 
  Country: None (occurrence: None)
  Receive Date: 20041025
  Receipt Date: 20041013
  Transmission Date: 20050328
  Serious: Yes (Hospitalization)
  Sender: FDA-Public Use
  Company Number: GB-BRISTOL-MYERS SQUIBB COMPANY-12730586

PATIENT
  Age: 48 Year
  Sex: Female

DRUGS (5)
  1. CARBOPLATIN [Suspect]
     Indication: OVARIAN CANCER
     Route: 042
  2. PACLITAXEL [Suspect]
     Indication: OVARIAN CANCER
     Route: 042
  3. GEMCITABINE HCL [Suspect]
     Indication: OVARIAN CANCER
     Route: 042
     Dates: start: 20040315, end: 20040315
  4. CHLORHEXIDINE GLUCONATE [Concomitant]
  5. METOCLOPRAMIDE [Concomitant]

REACTIONS (6)
  - BLOOD MAGNESIUM DECREASED [None]
  - BLOOD POTASSIUM DECREASED [None]
  - BODY TEMPERATURE INCREASED [None]
  - INFECTION [None]
  - MALAISE [None]
  - URINARY TRACT INFECTION [None]
